FAERS Safety Report 4839047-X (Version None)
Quarter: 2005Q4

REPORT INFORMATION
  Report Type: 
  Country: None (occurrence: None)
  Receive Date: 20051128
  Receipt Date: 20051128
  Transmission Date: 20060501
  Serious: Yes (Other)
  Sender: FDA-Public Use
  Company Number: None

PATIENT
  Age: 80 Year
  Sex: Male

DRUGS (1)
  1. MIOCHOL-E [Suspect]
     Dosage: ONE TIME ONLY
     Dates: start: 20051121, end: 20051121

REACTIONS (5)
  - CORNEAL OPACITY [None]
  - DEVICE FAILURE [None]
  - DRUG ADMINISTRATION ERROR [None]
  - INJECTION SITE REACTION [None]
  - MEDICATION ERROR [None]
